FAERS Safety Report 5503888-6 (Version None)
Quarter: 2007Q4

REPORT INFORMATION
  Report Type: 
  Country: None (occurrence: None)
  Receive Date: 20071030
  Receipt Date: 20071030
  Transmission Date: 20080405
  Serious: Yes (Other)
  Sender: FDA-Public Use
  Company Number: None

PATIENT
  Age: 28 Year
  Sex: Female

DRUGS (2)
  1. COPAXONE [Suspect]
     Indication: MULTIPLE SCLEROSIS
     Dosage: 20MG  QD  SQ
     Route: 058
     Dates: start: 20071003, end: 20071022
  2. NEURONTIN [Suspect]
     Dosage: QD  PO
     Route: 048

REACTIONS (3)
  - DRUG HYPERSENSITIVITY [None]
  - DRUG WITHDRAWAL SYNDROME [None]
  - FLUSHING [None]
